FAERS Safety Report 10094943 (Version 1)
Quarter: 2014Q2

REPORT INFORMATION
  Report Type: Spontaneous
  Country: US (occurrence: US)
  Receive Date: 20140422
  Receipt Date: 20140422
  Transmission Date: 20141212
  Serious: No
  Sender: FDA-Public Use
  Company Number: US-009507513-1404USA011198

PATIENT
  Age: 59 Year
  Sex: Female

DRUGS (1)
  1. NASONEX [Suspect]
     Dosage: 50 MICROGRAM, QD (1 DOSAGE DAILY)
     Route: 045

REACTIONS (1)
  - Swelling face [Recovered/Resolved]
